FAERS Safety Report 8057873-3 (Version None)
Quarter: 2012Q1

REPORT INFORMATION
  Report Type: 
  Country: None (occurrence: None)
  Receive Date: 20120120
  Receipt Date: 20060731
  Transmission Date: 20120608
  Serious: No
  Sender: FDA-Public Use
  Company Number: US-BIOGENIDEC-2006BI010699

PATIENT
  Age: 18 Year
  Sex: Female

DRUGS (1)
  1. AVONEX [Suspect]
     Indication: MULTIPLE SCLEROSIS
     Route: 030
     Dates: start: 20060609

REACTIONS (7)
  - HEADACHE [None]
  - HYPOAESTHESIA [None]
  - PAIN OF SKIN [None]
  - PARAESTHESIA [None]
  - INJECTION SITE HAEMATOMA [None]
  - BONE PAIN [None]
  - INFLUENZA LIKE ILLNESS [None]
